FAERS Safety Report 11964997 (Version 1)
Quarter: 2016Q1

REPORT INFORMATION
  Report Type: Spontaneous
  Country: US (occurrence: UM)
  Receive Date: 20160127
  Receipt Date: 20160127
  Transmission Date: 20160526
  Serious: Yes (Hospitalization, Other)
  Sender: FDA-Public Use
  Company Number: US-ACCORD-037297

PATIENT
  Age: 65 Year
  Sex: Female

DRUGS (2)
  1. PACLITAXEL/PACLITAXEL LIPOSOME [Suspect]
     Active Substance: PACLITAXEL
     Indication: OVARIAN CANCER STAGE III
     Route: 033
  2. CISPLATIN. [Concomitant]
     Active Substance: CISPLATIN
     Indication: OVARIAN CANCER STAGE III
     Route: 042

REACTIONS (7)
  - Inflammation [Recovering/Resolving]
  - Clostridium difficile colitis [None]
  - Failure to thrive [None]
  - Hepatic vein thrombosis [None]
  - Budd-Chiari syndrome [Recovering/Resolving]
  - Metastases to peritoneum [Recovering/Resolving]
  - Peritonitis bacterial [Recovering/Resolving]
